FAERS Safety Report 18648967 (Version 1)
Quarter: 2020Q4

REPORT INFORMATION
  Report Type: Spontaneous
  Country: US (occurrence: US)
  Receive Date: 20201222
  Receipt Date: 20201222
  Transmission Date: 20210114
  Serious: Yes (Other)
  Sender: FDA-Public Use
  Company Number: None

PATIENT
  Age: 78 Year
  Sex: Female

DRUGS (2)
  1. TRAVOPROST. [Concomitant]
     Active Substance: TRAVOPROST
  2. TRAVOPROST. [Suspect]
     Active Substance: TRAVOPROST

REACTIONS (1)
  - Intraocular pressure increased [None]

NARRATIVE: CASE EVENT DATE: 20200401
